FAERS Safety Report 10042833 (Version 3)
Quarter: 2014Q2

REPORT INFORMATION
  Report Type: Spontaneous
  Country: US (occurrence: US)
  Receive Date: 20140327
  Receipt Date: 20140611
  Transmission Date: 20141212
  Serious: No
  Sender: FDA-Public Use
  Company Number: US-GILEAD-2014-0098054

PATIENT
  Sex: Female

DRUGS (2)
  1. LETAIRIS [Suspect]
     Indication: SCLERODERMA
     Dosage: 10 MG, QD
     Route: 065
     Dates: start: 20140227
  2. LETAIRIS [Suspect]
     Indication: MIXED CONNECTIVE TISSUE DISEASE

REACTIONS (2)
  - Feeling abnormal [Unknown]
  - Oedema peripheral [Unknown]
